FAERS Safety Report 24114780 (Version 1)
Quarter: 2024Q3

REPORT INFORMATION
  Report Type: Report from Study
  Country: US (occurrence: US)
  Receive Date: 20240721
  Receipt Date: 20240721
  Transmission Date: 20241016
  Serious: Yes (Other)
  Sender: BAXTER
  Company Number: US-BAXTER-2023BAX026395

PATIENT
  Age: 82 Year
  Sex: Male

DRUGS (6)
  1. CYCLOPHOSPHAMIDE [Suspect]
     Active Substance: CYCLOPHOSPHAMIDE
     Indication: Lymphodepletion
     Dosage: 60 MILLIGRAM/KILOGRAM, QD, DOSAGE FORM: INFUSION
     Route: 042
     Dates: start: 20221029, end: 20221030
  2. CYCLOPHOSPHAMIDE [Suspect]
     Active Substance: CYCLOPHOSPHAMIDE
     Indication: Chemotherapy
  3. CYCLOPHOSPHAMIDE [Suspect]
     Active Substance: CYCLOPHOSPHAMIDE
     Indication: Lymphocyte adoptive therapy
  4. FLUDARABINE [Suspect]
     Active Substance: FLUDARABINE PHOSPHATE
     Indication: Lymphodepletion
     Dosage: 25 MILLIGRAM/SQ. METER, QD
     Route: 042
     Dates: start: 20221031, end: 20221104
  5. FLUDARABINE [Suspect]
     Active Substance: FLUDARABINE PHOSPHATE
     Indication: Chemotherapy
  6. FLUDARABINE [Suspect]
     Active Substance: FLUDARABINE PHOSPHATE
     Indication: Lymphocyte adoptive therapy

REACTIONS (1)
  - Melanoma recurrent [Not Recovered/Not Resolved]

NARRATIVE: CASE EVENT DATE: 20230518
